FAERS Safety Report 17361792 (Version 1)
Quarter: 2020Q1

REPORT INFORMATION
  Report Type: Report from Study
  Country: CN (occurrence: CN)
  Receive Date: 20200203
  Receipt Date: 20200203
  Transmission Date: 20200409
  Serious: Yes (Hospitalization)
  Sender: FDA-Public Use
  Company Number: CN-JNJFOC-20191133383

PATIENT
  Age: 34 Year
  Sex: Male
  Weight: 75 kg

DRUGS (8)
  1. ATOMOLAN [Concomitant]
     Indication: TRANSAMINASES INCREASED
     Dosage: 0.4 G, TID
     Route: 048
     Dates: start: 20190824, end: 20190830
  2. METHYLPREDNISOLONE. [Concomitant]
     Active Substance: METHYLPREDNISOLONE
     Indication: URTICARIA
     Route: 048
     Dates: start: 20191202
  3. LEVOCETIRIZINE DIHYDROCHLORIDE. [Concomitant]
     Active Substance: LEVOCETIRIZINE DIHYDROCHLORIDE
     Indication: URTICARIA
     Dosage: 5 MG, QD
     Dates: start: 20191202
  4. PRADAXA [Concomitant]
     Active Substance: DABIGATRAN ETEXILATE MESYLATE
     Indication: PULMONARY EMBOLISM
  5. RIVAROXABAN [Suspect]
     Active Substance: RIVAROXABAN
     Route: 048
     Dates: start: 20190816, end: 20191202
  6. PRADAXA [Concomitant]
     Active Substance: DABIGATRAN ETEXILATE MESYLATE
     Indication: PULMONARY EMBOLISM
     Route: 048
     Dates: start: 20191202
  7. EBASTINE [Concomitant]
     Active Substance: EBASTINE
     Indication: URTICARIA
     Dosage: 20 MG, QN
     Route: 048
     Dates: start: 20191202
  8. RIVAROXABAN [Suspect]
     Active Substance: RIVAROXABAN
     Indication: PULMONARY EMBOLISM
     Route: 048
     Dates: start: 20190717, end: 20190815

REACTIONS (2)
  - Haematuria [Recovered/Resolved]
  - Pulmonary embolism [Recovering/Resolving]

NARRATIVE: CASE EVENT DATE: 20190820
